FAERS Safety Report 23653256 (Version 5)
Quarter: 2024Q1

REPORT INFORMATION
  Report Type: Spontaneous
  Country: ES (occurrence: ES)
  Receive Date: 20240320
  Receipt Date: 20240325
  Transmission Date: 20240410
  Serious: Yes (Life-Threatening, Hospitalization, Other)
  Sender: FDA-Public Use
  Company Number: ES-009507513-2402ESP003124

PATIENT
  Age: 30 Year
  Sex: Female
  Weight: 78.3 kg

DRUGS (7)
  1. SUGAMMADEX SODIUM [Suspect]
     Active Substance: SUGAMMADEX SODIUM
     Indication: Neuromuscular blockade reversal
     Dosage: UNK
     Route: 042
     Dates: start: 20171019, end: 20171019
  2. ROCURONIUM BROMIDE [Concomitant]
     Active Substance: ROCURONIUM BROMIDE
     Dosage: UNK
     Route: 042
     Dates: start: 20171019, end: 20171019
  3. ONDANSETRON [Concomitant]
     Active Substance: ONDANSETRON
     Indication: Female sterilisation
     Dosage: UNK
     Route: 042
     Dates: start: 20171019, end: 20171019
  4. KETOROLAC [Concomitant]
     Active Substance: KETOROLAC TROMETHAMINE
     Dosage: UNK
     Route: 042
     Dates: start: 20171019, end: 20171019
  5. PROPOFOL [Concomitant]
     Active Substance: PROPOFOL
     Dosage: UNK
     Route: 042
     Dates: start: 20171019, end: 20171019
  6. FENTANYL [Concomitant]
     Active Substance: FENTANYL\FENTANYL CITRATE
     Dosage: UNK
     Route: 042
     Dates: start: 20171019, end: 20171019
  7. METAMIZOLE MAGNESIUM [Concomitant]
     Active Substance: METAMIZOLE MAGNESIUM
     Dosage: UNK
     Route: 042
     Dates: start: 20171019, end: 20171019

REACTIONS (3)
  - Anaphylactic shock [Recovered/Resolved]
  - Hyperglycaemia [Unknown]
  - Metabolic acidosis [Recovered/Resolved]

NARRATIVE: CASE EVENT DATE: 20171019
